FAERS Safety Report 26040400 (Version 2)
Quarter: 2025Q4

REPORT INFORMATION
  Report Type: Report from Study
  Country: EG (occurrence: EG)
  Receive Date: 20251113
  Receipt Date: 20251126
  Transmission Date: 20260118
  Serious: Yes (Death, Hospitalization)
  Sender: EISAI
  Company Number: EG-Eisai-EC-2025-199947

PATIENT
  Age: 56 Year
  Sex: Male

DRUGS (22)
  1. LENVIMA [Suspect]
     Active Substance: LENVATINIB
     Indication: Renal cell carcinoma
     Route: 048
     Dates: start: 20240517, end: 2025
  2. LENVIMA [Suspect]
     Active Substance: LENVATINIB
     Route: 048
     Dates: start: 202502, end: 20251029
  3. KEYTRUDA [Suspect]
     Active Substance: PEMBROLIZUMAB
     Indication: Renal cell carcinoma
     Route: 042
     Dates: start: 20220920, end: 202411
  4. KEYTRUDA [Suspect]
     Active Substance: PEMBROLIZUMAB
     Route: 042
     Dates: start: 20241215, end: 20241215
  5. KEYTRUDA [Suspect]
     Active Substance: PEMBROLIZUMAB
     Route: 042
     Dates: start: 20250119, end: 20250119
  6. KEYTRUDA [Suspect]
     Active Substance: PEMBROLIZUMAB
     Route: 042
     Dates: start: 20250212, end: 20250212
  7. KEYTRUDA [Suspect]
     Active Substance: PEMBROLIZUMAB
     Route: 042
     Dates: start: 202503, end: 20250924
  8. HYDROCHLOROTHIAZIDE\TELMISARTAN [Concomitant]
     Active Substance: HYDROCHLOROTHIAZIDE\TELMISARTAN
  9. STARKOPREX [Concomitant]
  10. BLOCK ALPHA [Concomitant]
  11. SILDOCARE [Concomitant]
  12. ALFUZOSIN [Concomitant]
     Active Substance: ALFUZOSIN
  13. EVASTINE [Concomitant]
  14. NASACORT [Concomitant]
     Active Substance: TRIAMCINOLONE ACETONIDE
  15. AZELAST [Concomitant]
  16. LORATADINE [Concomitant]
     Active Substance: LORATADINE
  17. BISOPROLOL FUMARATE [Concomitant]
     Active Substance: BISOPROLOL FUMARATE
  18. GLUCOPHAGE [Concomitant]
     Active Substance: METFORMIN HYDROCHLORIDE
  19. ASPIRIN [Concomitant]
     Active Substance: ASPIRIN
  20. ATORVASTATIN CALCIUM\EZETIMIBE [Concomitant]
     Active Substance: ATORVASTATIN CALCIUM\EZETIMIBE
  21. BIRLIQUE [Concomitant]
  22. PLAVIX [Concomitant]
     Active Substance: CLOPIDOGREL BISULFATE

REACTIONS (3)
  - Myocardial infarction [Fatal]
  - Cholecystitis [Unknown]
  - Lymphadenitis [Unknown]

NARRATIVE: CASE EVENT DATE: 20251018
